FAERS Safety Report 18413760 (Version 3)
Quarter: 2020Q4

REPORT INFORMATION
  Report Type: Report from Study
  Country: None (occurrence: NL)
  Receive Date: 20201021
  Receipt Date: 20201222
  Transmission Date: 20210114
  Serious: Yes (Hospitalization, Other)
  Sender: FDA-Public Use
  Company Number: NL-ABBVIE-20K-114-3616221-00

PATIENT
  Sex: Male
  Weight: 67 kg

DRUGS (4)
  1. DUODOPA [Suspect]
     Active Substance: CARBIDOPA\LEVODOPA
     Dosage: MD: 9.5 ML, CD: 4.1 ML/HR, ED: 2.2 ML, REMAINS AT 16 HOURS
     Route: 050
  2. MOVICOLON [Concomitant]
     Active Substance: POLYETHYLENE GLYCOL 3350\POTASSIUM CHLORIDE\SODIUM BICARBONATE\SODIUM CHLORIDE
     Indication: ABNORMAL FAECES
  3. SINEMET [Concomitant]
     Active Substance: CARBIDOPA\LEVODOPA
     Indication: MUSCLE RIGIDITY
     Dosage: 1 OR 2 A TIME PER NIGHT BEFORE 04:00
  4. DUODOPA [Suspect]
     Active Substance: CARBIDOPA\LEVODOPA
     Indication: PARKINSON^S DISEASE
     Dosage: MD: 10.0 ML, CD: 3.8 ML/HR, ED: 2.2 ML, REMAINS AT 16 HOURS
     Route: 050
     Dates: start: 20170120

REACTIONS (21)
  - Confusional state [Not Recovered/Not Resolved]
  - Eye operation [Recovered/Resolved]
  - Hallucination, visual [Not Recovered/Not Resolved]
  - Stoma site erythema [Recovered/Resolved]
  - Stoma site erythema [Recovered/Resolved]
  - COVID-19 [Not Recovered/Not Resolved]
  - Muscle rigidity [Unknown]
  - Weight fluctuation [Recovered/Resolved]
  - Stoma site pain [Recovered/Resolved]
  - Fatigue [Unknown]
  - Weight decreased [Recovered/Resolved]
  - Carpal tunnel syndrome [Not Recovered/Not Resolved]
  - Impaired quality of life [Unknown]
  - On and off phenomenon [Unknown]
  - Hallucination [Recovering/Resolving]
  - Nocturia [Not Recovered/Not Resolved]
  - Dyskinesia [Not Recovered/Not Resolved]
  - Nocturia [Recovered/Resolved]
  - Nervous system disorder [Unknown]
  - Freezing phenomenon [Unknown]
  - Memory impairment [Unknown]
